FAERS Safety Report 10064014 (Version 1)
Quarter: 2014Q2

REPORT INFORMATION
  Report Type: Spontaneous
  Country: DE (occurrence: DE)
  Receive Date: 20140408
  Receipt Date: 20140408
  Transmission Date: 20141212
  Serious: Yes (Congenital Anomaly, Other)
  Sender: FDA-Public Use
  Company Number: GXKR2014DE001485

PATIENT
  Age: 1 Day
  Sex: Male
  Weight: 2.03 kg

DRUGS (1)
  1. CITALOPRAM [Suspect]
     Indication: DEPRESSION
     Route: 064

REACTIONS (6)
  - Periventricular leukomalacia [Not Recovered/Not Resolved]
  - Premature baby [Recovered/Resolved]
  - Neonatal respiratory distress syndrome [Recovered/Resolved]
  - Cryptorchism [Unknown]
  - Congenital hypercoagulation [Not Recovered/Not Resolved]
  - Atrial septal defect [Unknown]
